FAERS Safety Report 25205786 (Version 3)
Quarter: 2025Q3

REPORT INFORMATION
  Report Type: Spontaneous
  Country: PE (occurrence: PE)
  Receive Date: 20250417
  Receipt Date: 20250721
  Transmission Date: 20251020
  Serious: Yes (Hospitalization)
  Sender: BRISTOL-MYERS SQUIBB COMPANY
  Company Number: PE-BRISTOL-MYERS SQUIBB COMPANY-2025-055883

PATIENT
  Age: 60 Year
  Sex: Female
  Weight: 50 kg

DRUGS (9)
  1. REVLIMID [Suspect]
     Active Substance: LENALIDOMIDE
     Indication: Plasma cell myeloma
     Dates: start: 20250226
  2. REVLIMID [Suspect]
     Active Substance: LENALIDOMIDE
     Route: 048
     Dates: start: 20250304, end: 20250311
  3. REVLIMID [Suspect]
     Active Substance: LENALIDOMIDE
     Dates: start: 20250528
  4. REVLIMID [Suspect]
     Active Substance: LENALIDOMIDE
     Dates: start: 202506
  5. REVLIMID [Suspect]
     Active Substance: LENALIDOMIDE
     Dates: start: 202507
  6. ATORVASTATIN [Concomitant]
     Active Substance: ATORVASTATIN
     Indication: Product used for unknown indication
     Route: 048
  7. FUROSEMIDE [Concomitant]
     Active Substance: FUROSEMIDE
     Indication: Product used for unknown indication
     Route: 048
  8. TOLODODEKIN ALFA [Concomitant]
     Active Substance: TOLODODEKIN ALFA
     Indication: Product used for unknown indication
     Dates: start: 202503
  9. TOLODODEKIN ALFA [Concomitant]
     Active Substance: TOLODODEKIN ALFA
     Dates: start: 202504

REACTIONS (3)
  - Diarrhoea [Recovered/Resolved]
  - Rash [Recovered/Resolved]
  - Renal disorder [Recovered/Resolved]

NARRATIVE: CASE EVENT DATE: 20250313
